FAERS Safety Report 9302969 (Version 1)
Quarter: 2013Q2

REPORT INFORMATION
  Report Type: Spontaneous
  Country: DE (occurrence: DE)
  Receive Date: 20130522
  Receipt Date: 20130522
  Transmission Date: 20140414
  Serious: Yes (Death)
  Sender: FDA-Public Use
  Company Number: DE-BRISTOL-MYERS SQUIBB COMPANY-18921528

PATIENT
  Age: 73 Year
  Sex: Male

DRUGS (10)
  1. ELIQUIS [Suspect]
     Indication: ATRIAL FIBRILLATION
     Dates: start: 20130222
  2. INSULIN [Concomitant]
     Dosage: 1DF:3*10IU/DAY
  3. NEBIVOLOL [Concomitant]
     Dosage: 1DF:5 1*DAY
  4. LERCANIDIPINE [Concomitant]
     Dosage: 1DF:20(1*DAY)
  5. DOXAZOSIN [Concomitant]
     Dosage: 1DF: 4(1*DAY)
  6. RAMIPRIL [Concomitant]
     Dosage: 1DF:5/525MG IN MORN AND 5MG/DAY IN EVENING
  7. METFORMIN [Concomitant]
     Dosage: 1DF:1000 UNITS NOS
  8. DIGITOXIN [Concomitant]
     Dosage: 1DF:0.07 UNITS NOS
  9. INSULIN HUMAN [Concomitant]
  10. FALITHROM [Concomitant]

REACTIONS (1)
  - Sudden death [Fatal]
